FAERS Safety Report 6656893-0 (Version None)
Quarter: 2010Q1

REPORT INFORMATION
  Report Type: 
  Country: None (occurrence: None)
  Receive Date: 20100329
  Receipt Date: 20100329
  Transmission Date: 20100710
  Serious: No
  Sender: FDA-Public Use
  Company Number: None

PATIENT
  Age: 80 Year
  Sex: Male
  Weight: 80.7403 kg

DRUGS (2)
  1. HYDROCODONE BITARTRATE AND ACETAMINOPHEN [Suspect]
     Indication: BACK PAIN
     Dosage: 10/325 8 PER DAY PO ,ALSO USED FOR  SEVERAL YEARS
     Route: 048
     Dates: start: 20090810, end: 20100328
  2. FENTANYL [Suspect]
     Indication: BACK PAIN
     Dosage: 25 MCG/HR 3 DAYS TRANSDERMAL
     Route: 062
     Dates: start: 20050601, end: 20100328

REACTIONS (3)
  - BLOOD PRESSURE DECREASED [None]
  - HEART RATE INCREASED [None]
  - LEFT ATRIAL DILATATION [None]
